FAERS Safety Report 7755342-9 (Version None)
Quarter: 2011Q3

REPORT INFORMATION
  Report Type: 
  Country: None (occurrence: None)
  Receive Date: 20110914
  Receipt Date: 20110901
  Transmission Date: 20111222
  Serious: Yes (Other)
  Sender: FDA-Public Use
  Company Number: US-1187813

PATIENT
  Sex: Male

DRUGS (1)
  1. BSS [Suspect]
     Indication: CATARACT OPERATION
     Dosage: INTRAOCULAR
     Route: 031
     Dates: start: 20110725, end: 20110725

REACTIONS (1)
  - EYE INFECTION STAPHYLOCOCCAL [None]
